FAERS Safety Report 21194823 (Version 4)
Quarter: 2022Q3

REPORT INFORMATION
  Report Type: Report from Study
  Country: CA (occurrence: CA)
  Receive Date: 20220810
  Receipt Date: 20220826
  Transmission Date: 20221027
  Serious: Yes (Other)
  Sender: FDA-Public Use
  Company Number: CA-NOVARTISPH-NVSC2022CA101921

PATIENT
  Sex: Female

DRUGS (2)
  1. COSENTYX [Suspect]
     Active Substance: SECUKINUMAB
     Indication: Psoriasis
     Dosage: 300 MG, QW (WEEK 0, 1, 2, 3)
     Route: 058
     Dates: start: 20220428
  2. COSENTYX [Suspect]
     Active Substance: SECUKINUMAB
     Dosage: 300 MG, QMO
     Route: 058

REACTIONS (7)
  - Pneumonia [Unknown]
  - Bronchitis [Unknown]
  - Decreased immune responsiveness [Unknown]
  - Anxiety [Unknown]
  - Fear of injection [Unknown]
  - Injection site discomfort [Unknown]
  - Inappropriate schedule of product administration [Unknown]
